FAERS Safety Report 11690674 (Version 1)
Quarter: 2015Q4

REPORT INFORMATION
  Report Type: Spontaneous
  Country: US (occurrence: US)
  Receive Date: 20151102
  Receipt Date: 20151102
  Transmission Date: 20160304
  Serious: Yes (Other)
  Sender: FDA-Public Use
  Company Number: US-CIPLA LTD.-2015US08203

PATIENT

DRUGS (11)
  1. PACLITAXEL. [Suspect]
     Active Substance: PACLITAXEL
     Indication: CERVIX CARCINOMA RECURRENT
     Dosage: UNK
     Dates: start: 201108, end: 201201
  2. IMMUNOTHERAPY TREATMENT [Suspect]
     Active Substance: UNSPECIFIED INGREDIENT
     Indication: CERVIX CARCINOMA RECURRENT
     Route: 065
  3. CISPLATIN. [Suspect]
     Active Substance: CISPLATIN
     Indication: CERVIX CARCINOMA RECURRENT
     Dosage: 50 MG/M2, ON CYCLE DAY 1
     Route: 065
     Dates: start: 201310, end: 201401
  4. OXALIPLATIN. [Suspect]
     Active Substance: OXALIPLATIN
     Dosage: UNK
     Route: 065
     Dates: start: 201301, end: 201310
  5. TOPOTECAN [Suspect]
     Active Substance: TOPOTECAN\TOPOTECAN HYDROCHLORIDE
     Dosage: 0.75 MG/M2, QD
     Route: 065
     Dates: start: 201402
  6. TAXANES [Suspect]
     Active Substance: UNSPECIFIED INGREDIENT
     Indication: CERVIX CARCINOMA RECURRENT
     Route: 048
  7. TOPOTECAN [Suspect]
     Active Substance: TOPOTECAN\TOPOTECAN HYDROCHLORIDE
     Indication: CERVIX CARCINOMA RECURRENT
     Dosage: 0.75 MG/M2, QD ON CYCLE DAYS 1, 2 3
     Route: 065
     Dates: start: 201310, end: 201401
  8. CISPLATIN. [Suspect]
     Active Substance: CISPLATIN
     Dosage: UNK
     Route: 065
     Dates: start: 201402
  9. OXALIPLATIN. [Suspect]
     Active Substance: OXALIPLATIN
     Indication: CERVIX CARCINOMA RECURRENT
     Dosage: UNK
     Dates: start: 201108, end: 201201
  10. RADIATION [Suspect]
     Active Substance: RADIATION THERAPY
     Indication: CERVIX CARCINOMA RECURRENT
     Route: 065
  11. PACLITAXEL. [Suspect]
     Active Substance: PACLITAXEL
     Dosage: UNK
     Route: 065
     Dates: start: 201301, end: 201310

REACTIONS (4)
  - Mental status changes [Recovering/Resolving]
  - Unresponsive to stimuli [Unknown]
  - Status epilepticus [Recovered/Resolved]
  - Disease progression [Unknown]

NARRATIVE: CASE EVENT DATE: 201402
